FAERS Safety Report 16375986 (Version 1)
Quarter: 2019Q2

REPORT INFORMATION
  Report Type: Spontaneous
  Country: FR (occurrence: FR)
  Receive Date: 20190531
  Receipt Date: 20190531
  Transmission Date: 20190711
  Serious: Yes (Hospitalization)
  Sender: FDA-Public Use
  Company Number: FR-ACCORD-130212

PATIENT
  Age: 56 Year
  Sex: Female
  Weight: 52 kg

DRUGS (14)
  1. DIFFU K [Concomitant]
     Active Substance: POTASSIUM CHLORIDE
  2. SMOFKABIVEN [Concomitant]
     Active Substance: AMINO ACIDS\DEXTROSE\ELECTROLYTES NOS\SOYBEAN OIL
  3. FUROSEMIDE. [Suspect]
     Active Substance: FUROSEMIDE
     Route: 048
  4. LEVOTHYROX [Concomitant]
     Active Substance: LEVOTHYROXINE
  5. DULCOLAX NOS [Suspect]
     Active Substance: BISACODYL OR DOCUSATE SODIUM
     Dosage: ALSO RECEIVED BY RECTAL ROUTE AS SUPPOSITORY
     Route: 048
  6. OROZAMUDOL [Concomitant]
     Active Substance: TRAMADOL
  7. IMOVANE [Concomitant]
     Active Substance: ZOPICLONE
  8. NUTRYELT [Concomitant]
     Active Substance: IRON\MINERALS\POTASSIUM IOD\SODIUM FLUORIDE\SODIUM MOLYBDATE\SODIUM SELENITE\ZINC
  9. MOTILIUM [Concomitant]
     Active Substance: DOMPERIDONE
  10. DEBRIDAT [Concomitant]
     Active Substance: TRIMEBUTINE MALEATE
  11. DOLIPRANE [Concomitant]
     Active Substance: ACETAMINOPHEN
  12. RELPAX [Concomitant]
     Active Substance: ELETRIPTAN HYDROBROMIDE
  13. CERNEVIT [Concomitant]
     Active Substance: VITAMINS
  14. SPASFON [Concomitant]

REACTIONS (3)
  - Intentional product misuse [Unknown]
  - Torsade de pointes [Recovered/Resolved]
  - Hypokalaemia [Recovering/Resolving]

NARRATIVE: CASE EVENT DATE: 2019
